FAERS Safety Report 5804793-8 (Version None)
Quarter: 2008Q3

REPORT INFORMATION
  Report Type: 
  Country: None (occurrence: None)
  Receive Date: 20080709
  Receipt Date: 20080630
  Transmission Date: 20090109
  Serious: Yes (Hospitalization)
  Sender: FDA-Public Use
  Company Number: SE-AVENTIS-200815958GDDC

PATIENT
  Age: 83 Year
  Sex: Male

DRUGS (12)
  1. DAONIL [Suspect]
     Indication: DIABETES MELLITUS
     Dosage: DOSE: UNK
     Route: 048
     Dates: end: 20080215
  2. COZAAR [Suspect]
  3. ZYLORIC [Suspect]
  4. FURIX [Suspect]
  5. SPIRONOLACTONE [Suspect]
  6. TRAMADOL HCL [Concomitant]
  7. B-KOMBIN FORTE [Concomitant]
  8. GABAPENTIN [Concomitant]
  9. ACETAMINOPHEN [Concomitant]
  10. VITAMIN D AND ANALOGUES [Concomitant]
  11. ACETYLCYSTEINE [Concomitant]
  12. KETOGAN                            /00129101/ [Concomitant]

REACTIONS (2)
  - HYPOGLYCAEMIA [None]
  - RENAL FAILURE [None]
